FAERS Safety Report 8620686-5 (Version None)
Quarter: 2012Q3

REPORT INFORMATION
  Report Type: 
  Country: None (occurrence: None)
  Receive Date: 20120824
  Receipt Date: 20120817
  Transmission Date: 20120928
  Serious: Yes (Other)
  Sender: FDA-Public Use
  Company Number: US-FRI-1000037929

PATIENT
  Age: 75 Year
  Sex: Female

DRUGS (8)
  1. VIIBRYD [Suspect]
     Indication: INSOMNIA
     Dosage: 10 MG
     Route: 048
     Dates: start: 20120527
  2. COENZYME Q10 [Concomitant]
     Indication: HYPERTENSION
  3. ALPRAZOLAM [Concomitant]
     Dosage: 0.5 MG IN AM AND AT 1600
  4. SIMVASTATIN [Concomitant]
     Indication: BLOOD CHOLESTEROL INCREASED
  5. LOSARTAN POTASSIUM [Concomitant]
     Indication: HYPERTENSION
     Dosage: 50 MG QAM
  6. HYDROCHLOROTHIAZIDE [Concomitant]
     Indication: HYPERTENSION
     Dosage: 12.5 MG
  7. ALPRAZOLAM [Concomitant]
     Indication: SPINAL OSTEOARTHRITIS
     Dosage: 1 MG QHS
  8. METOPROLOL SUCCINATE [Concomitant]
     Indication: HYPERTENSION
     Dosage: 50 MG

REACTIONS (4)
  - OFF LABEL USE [None]
  - BLOOD PRESSURE INCREASED [None]
  - PALPITATIONS [None]
  - TINNITUS [None]
